FAERS Safety Report 11627893 (Version 1)
Quarter: 2015Q4

REPORT INFORMATION
  Report Type: Spontaneous
  Country: US (occurrence: None)
  Receive Date: 20151013
  Receipt Date: 20151013
  Transmission Date: 20160304
  Serious: Yes (Other)
  Sender: FDA-Public Use
  Company Number: None

PATIENT
  Age: 51 Year
  Sex: Female
  Weight: 74.84 kg

DRUGS (7)
  1. BIOIDENTICAL ESTRADIOL [Concomitant]
  2. ELIDEL [Suspect]
     Active Substance: PIMECROLIMUS
     Indication: DERMATITIS ATOPIC
     Dosage: ONE APPLICATION THIN LAYER APPLIED TO A SURFACE, USUALLY THE SKIN
     Route: 061
  3. PROBIOTICS [Concomitant]
     Active Substance: PROBIOTICS NOS
  4. MULTI VITAMINS [Concomitant]
  5. PROGESTERONE. [Concomitant]
     Active Substance: PROGESTERONE
  6. MELATONIN [Concomitant]
     Active Substance: MELATONIN
  7. VITAMIN B12 [Concomitant]
     Active Substance: CYANOCOBALAMIN

REACTIONS (5)
  - Application site pain [None]
  - Eye pain [None]
  - Lacrimation increased [None]
  - Application site burn [None]
  - Rash [None]

NARRATIVE: CASE EVENT DATE: 20151008
